FAERS Safety Report 13938355 (Version 2)
Quarter: 2017Q3

REPORT INFORMATION
  Report Type: Spontaneous
  Country: IL (occurrence: IL)
  Receive Date: 20170905
  Receipt Date: 20170914
  Transmission Date: 20171127
  Serious: Yes (Other)
  Sender: FDA-Public Use
  Company Number: IL-CELGENEUS-ISR-20170808307

PATIENT
  Age: 20 Year
  Sex: Female
  Weight: 46.6 kg

DRUGS (8)
  1. AZACITIDINE. [Suspect]
     Active Substance: AZACITIDINE
     Indication: EPENDYMOMA
     Dosage: 100 MG
     Route: 065
     Dates: start: 20170730, end: 20170802
  2. GABAPENTIN. [Concomitant]
     Active Substance: GABAPENTIN
     Indication: NEUROPATHY PERIPHERAL
     Dosage: 900 MG
     Route: 048
  3. GLYCOPYRROLATE. [Concomitant]
     Active Substance: GLYCOPYRROLATE
     Indication: SECRETION DISCHARGE
     Dosage: 1.5 MG
     Route: 048
  4. LOSEC [Concomitant]
     Active Substance: OMEPRAZOLE
     Indication: GASTROOESOPHAGEAL REFLUX DISEASE
     Dosage: 20 MG
     Route: 048
  5. BIPAP [Concomitant]
     Active Substance: DEVICE
     Indication: PRODUCT USED FOR UNKNOWN INDICATION
     Route: 065
  6. SCOPOLAMINE [Concomitant]
     Active Substance: SCOPOLAMINE
     Indication: PRODUCT USED FOR UNKNOWN INDICATION
     Route: 065
  7. OMEPRADEX [Concomitant]
     Active Substance: OMEPRAZOLE
     Indication: PRODUCT USED FOR UNKNOWN INDICATION
     Route: 065
  8. RESPISUN [Concomitant]
     Indication: INFECTION PROPHYLAXIS
     Dosage: 800 MG
     Route: 048

REACTIONS (5)
  - Malaise [Unknown]
  - Neutropenia [Recovered/Resolved]
  - Pyrexia [Recovered/Resolved]
  - Ependymoma malignant [Unknown]
  - Chills [Recovered/Resolved]

NARRATIVE: CASE EVENT DATE: 2017
